FAERS Safety Report 9856547 (Version 1)
Quarter: 2014Q1

REPORT INFORMATION
  Report Type: Spontaneous
  Country: AU (occurrence: AU)
  Receive Date: 20140130
  Receipt Date: 20140130
  Transmission Date: 20141002
  Serious: Yes (Life-Threatening)
  Sender: FDA-Public Use
  Company Number: AU-SA-2014SA008524

PATIENT
  Age: 55 Year
  Sex: Male
  Weight: 78 kg

DRUGS (4)
  1. STILNOX [Suspect]
     Indication: SLEEP DISORDER
     Route: 048
     Dates: start: 20130731, end: 20130731
  2. STILNOX [Suspect]
     Indication: SLEEP DISORDER
     Route: 048
  3. LEXAPRO [Concomitant]
     Indication: DEPRESSION
     Route: 048
     Dates: start: 20130310
  4. IBUPROFEN [Concomitant]
     Route: 048
     Dates: start: 20090101

REACTIONS (3)
  - Self injurious behaviour [Recovered/Resolved]
  - Abnormal sleep-related event [Recovered/Resolved]
  - Amnesia [Recovered/Resolved]
